FAERS Safety Report 5003981-0 (Version None)
Quarter: 2006Q2

REPORT INFORMATION
  Report Type: 
  Country: None (occurrence: None)
  Receive Date: 20060517
  Receipt Date: 20060502
  Transmission Date: 20061013
  Serious: Yes (Other)
  Sender: FDA-Public Use
  Company Number: PT-AMGEN-UK178472

PATIENT
  Sex: Male
  Weight: 85 kg

DRUGS (7)
  1. MIMPARA [Suspect]
     Indication: HYPERPARATHYROIDISM SECONDARY
     Route: 048
     Dates: start: 20050329
  2. ZEMPLAR [Concomitant]
     Route: 042
     Dates: start: 20050420
  3. VENOFER [Concomitant]
     Route: 042
     Dates: start: 20050102
  4. ARANESP [Concomitant]
     Route: 042
     Dates: start: 20060101
  5. ATENOLOL [Concomitant]
     Route: 048
     Dates: start: 20050101
  6. RENAGEL [Concomitant]
     Route: 048
     Dates: start: 20050101
  7. PLAVIX [Concomitant]
     Route: 048
     Dates: start: 20060101

REACTIONS (2)
  - ABDOMINAL PAIN UPPER [None]
  - DYSPEPSIA [None]
